FAERS Safety Report 21269244 (Version 1)
Quarter: 2022Q3

REPORT INFORMATION
  Report Type: Other
  Country: AU (occurrence: None)
  Receive Date: 20220830
  Receipt Date: 20220830
  Transmission Date: 20221027
  Serious: No
  Sender: FDA-Public Use
  Company Number: AU-ROCHE-3166245

PATIENT
  Age: 71 Year
  Sex: Female
  Weight: 68 kg

DRUGS (2)
  1. OCREVUS [Suspect]
     Active Substance: OCRELIZUMAB
     Indication: Multiple sclerosis
     Route: 042
  2. CHOLECALCIFEROL [Concomitant]
     Active Substance: CHOLECALCIFEROL
     Dosage: 12.5MG/600MCG
     Route: 048

REACTIONS (5)
  - Gait disturbance [Unknown]
  - Herpes zoster [Unknown]
  - Treatment delayed [Unknown]
  - COVID-19 [Unknown]
  - Balance disorder [Unknown]

NARRATIVE: CASE EVENT DATE: 20220822
